FAERS Safety Report 21105470 (Version 2)
Quarter: 2022Q3

REPORT INFORMATION
  Report Type: Spontaneous
  Country: US (occurrence: US)
  Receive Date: 20220720
  Receipt Date: 20220913
  Transmission Date: 20221027
  Serious: No
  Sender: FDA-Public Use
  Company Number: US-PFIZER INC-202200934335

PATIENT
  Age: 15 Year
  Sex: Female
  Weight: 49 kg

DRUGS (1)
  1. GENOTROPIN [Suspect]
     Active Substance: SOMATROPIN
     Indication: Prader-Willi syndrome
     Dosage: 1.6 ML, 1X/DAY (1.6 ML EVERY NIGHT; STOMACH AREA OR BUTT CHEEKS)

REACTIONS (4)
  - Device information output issue [Unknown]
  - Device use issue [Unknown]
  - Expired device used [Unknown]
  - Poor quality device used [Unknown]
